FAERS Safety Report 6814496-9 (Version None)
Quarter: 2010Q3

REPORT INFORMATION
  Report Type: 
  Country: None (occurrence: None)
  Receive Date: 20100702
  Receipt Date: 20100624
  Transmission Date: 20110219
  Serious: Yes (Hospitalization, Other)
  Sender: FDA-Public Use
  Company Number: US-AMGEN-QUU391828

PATIENT
  Sex: Female

DRUGS (2)
  1. ENBREL [Suspect]
     Indication: RHEUMATOID ARTHRITIS
     Route: 058
     Dates: start: 20050715
  2. UNSPECIFIED HORMONE REPLACEMENT THERAPY AGENT [Concomitant]

REACTIONS (4)
  - ARTHRALGIA [None]
  - BONE DENSITY DECREASED [None]
  - HYSTERECTOMY [None]
  - INJECTION SITE HAEMATOMA [None]
